FAERS Safety Report 9865297 (Version 1)
Quarter: 2014Q1

REPORT INFORMATION
  Report Type: Spontaneous
  Country: US (occurrence: US)
  Receive Date: 20140203
  Receipt Date: 20140203
  Transmission Date: 20141002
  Serious: No
  Sender: FDA-Public Use
  Company Number: US-ALLERGAN-1301081US

PATIENT
  Age: 62 Year
  Sex: Female

DRUGS (7)
  1. RESTASIS [Suspect]
     Indication: SJOGREN^S SYNDROME
     Dosage: 2 GTT, UNK
     Route: 047
     Dates: start: 2010
  2. RESTASIS [Suspect]
     Dosage: UNK
     Route: 047
     Dates: start: 2012, end: 2012
  3. O2 THERAPY [Concomitant]
     Indication: CHRONIC OBSTRUCTIVE PULMONARY DISEASE
     Dosage: UNK UNK, PRN
  4. CORTICOSTEROID CREAM [Concomitant]
     Indication: NERVE COMPRESSION
     Dosage: UNK
     Route: 061
  5. STEROID INHALER [Concomitant]
     Indication: PRODUCT USED FOR UNKNOWN INDICATION
     Dosage: UNK
     Route: 055
  6. VISINE ALLERGY                     /00419602/ [Concomitant]
     Indication: DRY EYE
     Dosage: 4 GTT, PRN
     Route: 047
  7. TETRACYLINE EYE DROPS [Concomitant]
     Indication: PRODUCT USED FOR UNKNOWN INDICATION
     Dosage: UNK, PRN
     Route: 047

REACTIONS (5)
  - Inappropriate schedule of drug administration [Unknown]
  - Eyelid margin crusting [Unknown]
  - Eyelid margin crusting [Unknown]
  - Instillation site pain [Not Recovered/Not Resolved]
  - Instillation site irritation [Not Recovered/Not Resolved]
